FAERS Safety Report 9131858 (Version 1)
Quarter: 2013Q1

REPORT INFORMATION
  Report Type: Spontaneous
  Country: US (occurrence: US)
  Receive Date: 20130301
  Receipt Date: 20130301
  Transmission Date: 20140127
  Serious: Yes (Other)
  Sender: FDA-Public Use
  Company Number: US-ELI_LILLY_AND_COMPANY-US201302007783

PATIENT
  Age: 69 Year
  Sex: Female

DRUGS (6)
  1. BYETTA [Suspect]
     Indication: WEIGHT DECREASED
     Dosage: 10 UG, BID
     Route: 058
     Dates: start: 2005
  2. CLONAZEPAM [Concomitant]
  3. IBUPROFEN [Concomitant]
  4. FISH OIL [Concomitant]
  5. CALCIUM [Concomitant]
  6. VITAMIN B12 [Concomitant]

REACTIONS (2)
  - Pancreatic carcinoma stage IV [Unknown]
  - Off label use [Unknown]
